FAERS Safety Report 8347966-5 (Version None)
Quarter: 2012Q2

REPORT INFORMATION
  Report Type: 
  Country: None (occurrence: None)
  Receive Date: 20120509
  Receipt Date: 20120501
  Transmission Date: 20120825
  Serious: Yes (Other)
  Sender: FDA-Public Use
  Company Number: TR-ELI_LILLY_AND_COMPANY-TR201205001222

PATIENT

DRUGS (2)
  1. CISPLATIN [Concomitant]
     Indication: BLADDER CANCER
     Dosage: 75 MG/M2, DAY 1
  2. GEMCITABINE HYDROCHLORIDE [Suspect]
     Indication: BLADDER CANCER
     Dosage: 1000 MG/M2, DAY 1 AND 8

REACTIONS (1)
  - NEPHROPATHY TOXIC [None]
